FAERS Safety Report 25871556 (Version 3)
Quarter: 2025Q4

REPORT INFORMATION
  Report Type: Spontaneous
  Country: EU (occurrence: EU)
  Receive Date: 20251001
  Receipt Date: 20251024
  Transmission Date: 20260117
  Serious: Yes (Other)
  Sender: MYLAN
  Company Number: EU-MINISAL02-1058111

PATIENT
  Age: 70 Year
  Sex: Male

DRUGS (9)
  1. DABIGATRAN ETEXILATE MESYLATE [Suspect]
     Active Substance: DABIGATRAN ETEXILATE MESYLATE
     Indication: Product used for unknown indication
     Dosage: 150 MILLIGRAM, BID, 150 MG 2 TIMES DAILY, CAPSULE HARD (300 MG, QD)
     Dates: start: 202306
  2. AMIODARONE HYDROCHLORIDE [Concomitant]
     Active Substance: AMIODARONE HYDROCHLORIDE
     Dosage: 200 MILLIGRAM, QD, 200 MG ONCE A DAY
  3. Luvion [Concomitant]
     Dosage: 100 MILLIGRAM, QD, 100 MG 1 TIME A DAY
  4. METOPROLOL TARTRATE [Concomitant]
     Active Substance: METOPROLOL TARTRATE
     Dosage: UNK
  5. ENTRESTO [Concomitant]
     Active Substance: SACUBITRIL\VALSARTAN
     Dosage: 100 MILLIGRAM, BID, 49+51 MG 2 TIMES A DAY
  6. JARDIANCE [Concomitant]
     Active Substance: EMPAGLIFLOZIN
     Dosage: 10 MILLIGRAM, QD, 10 MG ONCE DAILY
  7. ATORVASTATIN CALCIUM TRIHYDRATE\EZETIMIBE [Concomitant]
     Active Substance: ATORVASTATIN CALCIUM TRIHYDRATE\EZETIMIBE
     Dosage: 40 MILLIGRAM, QD, 40 MILLIGRAMS ATORVASTATIN 1 TIME A DAY
  8. ATORVASTATIN CALCIUM TRIHYDRATE\EZETIMIBE [Concomitant]
     Active Substance: ATORVASTATIN CALCIUM TRIHYDRATE\EZETIMIBE
     Dosage: 10 MILLIGRAM, QD, 10 MG EZETIMIBE DAILY
  9. PANTOPRAZOLE SODIUM [Concomitant]
     Active Substance: PANTOPRAZOLE SODIUM
     Dosage: 40 MILLIGRAM, QD

REACTIONS (5)
  - Subdural haemorrhage [Unknown]
  - Headache [Unknown]
  - Vomiting [Unknown]
  - Balance disorder [Unknown]
  - Somnolence [Unknown]

NARRATIVE: CASE EVENT DATE: 20250801
